FAERS Safety Report 4372349-2 (Version None)
Quarter: 2004Q2

REPORT INFORMATION
  Report Type: 
  Country: None (occurrence: None)
  Receive Date: 20040526
  Receipt Date: 20040520
  Transmission Date: 20050107
  Serious: Yes (Hospitalization)
  Sender: FDA-Public Use
  Company Number: 200411756GDS

PATIENT
  Age: 29 Year
  Sex: Female

DRUGS (1)
  1. ASPIRIN [Suspect]
     Dosage: 500 MG, QD, ORAL
     Route: 048
     Dates: start: 20040513

REACTIONS (1)
  - HYPERSENSITIVITY [None]
